FAERS Safety Report 8471652 (Version 4)
Quarter: 2012Q4

REPORT INFORMATION
  Report Type: 
  Country: BR (occurrence: BR)
  Receive Date: 20120322
  Receipt Date: 20120920
  Transmission Date: 20130627
  Serious: Yes (Hospitalization)
  Sender: FDA-Public Use
  Company Number: BR-BIOMARINP-002394

PATIENT
  Sex: Female
  Weight: 15 kg

DRUGS (1)
  1. NAGLAZYME [Suspect]
     Indication: MUCOPOLYSACCHARIDOSIS VI
     Route: 041
     Dates: start: 20091002

REACTIONS (6)
  - Device related infection [Unknown]
  - Umbilical hernia [Unknown]
  - Device related infection [None]
  - Escherichia test positive [None]
  - Wrong technique in drug usage process [None]
  - Treatment noncompliance [None]
